FAERS Safety Report 7774881-8 (Version None)
Quarter: 2011Q3

REPORT INFORMATION
  Report Type: 
  Country: None (occurrence: None)
  Receive Date: 20110921
  Receipt Date: 20110909
  Transmission Date: 20111222
  Serious: Yes (Hospitalization, Disabling)
  Sender: FDA-Public Use
  Company Number: 2011MA013401

PATIENT
  Age: 31 Year
  Sex: Female

DRUGS (12)
  1. QUETIAPINE FUMARATE [Suspect]
     Route: 048
     Dates: start: 19990101, end: 20110501
  2. AMITRIPTYLINE HCL [Suspect]
  3. SEROXAT (NO PREF. NAME) [Suspect]
     Dosage: 20 MG; TID; PO
     Dates: start: 19990101, end: 20110501
  4. CODEINE SULFATE [Suspect]
  5. LORAZEPAM [Suspect]
     Indication: PRODUCT USED FOR UNKNOWN INDICATION
  6. CLONAZEPAM [Suspect]
     Indication: PRODUCT USED FOR UNKNOWN INDICATION
  7. PROCYCLIDINE (PROCYCLIDINE) [Suspect]
  8. DOMEPERIDONE (DOMPERIDONE) [Suspect]
  9. MIRTAZAPINE [Suspect]
     Indication: PRODUCT USED FOR UNKNOWN INDICATION
  10. DIAZEPAM [Suspect]
     Indication: PRODUCT USED FOR UNKNOWN INDICATION
  11. OMEPRAZOLE [Suspect]
  12. TRAMADOL HYDROCHLORIDE [Suspect]
     Indication: NECK PAIN

REACTIONS (50)
  - FATIGUE [None]
  - MATERNAL DRUGS AFFECTING FOETUS [None]
  - ARTHRALGIA [None]
  - DELIRIUM [None]
  - VOMITING [None]
  - CYANOSIS [None]
  - PAIN [None]
  - DISORIENTATION [None]
  - MANIA [None]
  - BACK PAIN [None]
  - SLEEP DISORDER [None]
  - HEADACHE [None]
  - MYALGIA [None]
  - DECREASED APPETITE [None]
  - PALLOR [None]
  - MOOD SWINGS [None]
  - SEROTONIN SYNDROME [None]
  - IRRITABILITY [None]
  - VISUAL IMPAIRMENT [None]
  - PSYCHOTIC DISORDER [None]
  - HYPOAESTHESIA [None]
  - POISONING [None]
  - PREGNANCY [None]
  - NECK PAIN [None]
  - HYPERHIDROSIS [None]
  - FEELING ABNORMAL [None]
  - CONTUSION [None]
  - MALAISE [None]
  - DYSPNOEA [None]
  - HALLUCINATION [None]
  - PAROSMIA [None]
  - VISION BLURRED [None]
  - PARAESTHESIA [None]
  - NIGHTMARE [None]
  - ROAD TRAFFIC ACCIDENT [None]
  - HEART RATE INCREASED [None]
  - DISSOCIATION [None]
  - TREMOR [None]
  - AGITATION [None]
  - DEPERSONALISATION [None]
  - VIITH NERVE PARALYSIS [None]
  - PRURITUS [None]
  - SUICIDAL IDEATION [None]
  - RESTLESS LEGS SYNDROME [None]
  - ANXIETY [None]
  - CONFUSIONAL STATE [None]
  - BLOOD SODIUM DECREASED [None]
  - HYPERSOMNIA [None]
  - MENSTRUATION IRREGULAR [None]
  - SWOLLEN TONGUE [None]
